APPROVED DRUG PRODUCT: ARIXTRA
Active Ingredient: FONDAPARINUX SODIUM
Strength: 10MG/0.8ML
Dosage Form/Route: SOLUTION;SUBCUTANEOUS
Application: N021345 | Product #004 | TE Code: AP
Applicant: MYLAN IRELAND LTD
Approved: May 28, 2004 | RLD: Yes | RS: Yes | Type: RX